FAERS Safety Report 4473901-6 (Version None)
Quarter: 2004Q4

REPORT INFORMATION
  Report Type: 
  Country: None (occurrence: None)
  Receive Date: 20041008
  Receipt Date: 20040922
  Transmission Date: 20050328
  Serious: Yes (Other)
  Sender: FDA-Public Use
  Company Number: USA040875914

PATIENT
  Age: 45 Year
  Sex: Male

DRUGS (5)
  1. OLANZAPINE [Suspect]
     Indication: SCHIZOPHRENIA
     Dates: start: 19980101, end: 19991001
  2. FOSINOPRIL [Concomitant]
  3. HYDROCHLOROTHIAZIDE [Concomitant]
  4. NAPROSYN (NAPROXEN MEPHA) [Concomitant]
  5. BACLOFEN [Concomitant]

REACTIONS (5)
  - DIABETES MELLITUS NON-INSULIN-DEPENDENT [None]
  - HYPERGLYCAEMIA [None]
  - MYOCARDIAL INFARCTION [None]
  - POST-TRAUMATIC STRESS DISORDER [None]
  - WEIGHT INCREASED [None]
